FAERS Safety Report 13795795 (Version 2)
Quarter: 2017Q4

REPORT INFORMATION
  Report Type: Report from Study
  Country: FR (occurrence: FR)
  Receive Date: 20170726
  Receipt Date: 20171027
  Transmission Date: 20180320
  Serious: Yes (Congenital Anomaly, Other)
  Sender: FDA-Public Use
  Company Number: FR-009507513-1707FRA010431

PATIENT
  Age: 0 Day
  Sex: Male

DRUGS (2)
  1. ISENTRESS [Suspect]
     Active Substance: RALTEGRAVIR POTASSIUM
     Dosage: UNK
     Route: 064
     Dates: end: 20170608
  2. EPIVIR [Suspect]
     Active Substance: LAMIVUDINE
     Dosage: UNK
     Route: 064
     Dates: end: 20170608

REACTIONS (2)
  - Ear malformation [Unknown]
  - Oesophageal atresia [Recovered/Resolved with Sequelae]

NARRATIVE: CASE EVENT DATE: 20170608
